FAERS Safety Report 10168361 (Version 1)
Quarter: 2014Q2

REPORT INFORMATION
  Report Type: Spontaneous
  Country: KR (occurrence: KR)
  Receive Date: 20140513
  Receipt Date: 20140513
  Transmission Date: 20141212
  Serious: Yes (Death, Hospitalization)
  Sender: FDA-Public Use
  Company Number: KR-ACCORD-023535

PATIENT
  Age: 84 Year
  Sex: Male

DRUGS (2)
  1. ALLOPURINOL/ALLOPURINOL SODIUM [Suspect]
     Indication: RENAL FAILURE CHRONIC
  2. TORASEMIDE [Concomitant]
     Indication: RENAL FAILURE CHRONIC

REACTIONS (5)
  - Sinus tachycardia [Unknown]
  - Cardiac arrest [Fatal]
  - Chest pain [Unknown]
  - Myocardial necrosis marker increased [Unknown]
  - Drug reaction with eosinophilia and systemic symptoms [Fatal]
